FAERS Safety Report 6924347-X (Version None)
Quarter: 2010Q3

REPORT INFORMATION
  Report Type: 
  Country: None (occurrence: None)
  Receive Date: 20100811
  Receipt Date: 20100811
  Transmission Date: 20110219
  Serious: No
  Sender: FDA-Public Use
  Company Number: None

PATIENT
  Sex: Female
  Weight: 49.8957 kg

DRUGS (1)
  1. MINOCYCLINE HCL [Suspect]
     Indication: ACNE
     Dosage: 50MG BID PO
     Route: 048
     Dates: start: 20080806, end: 20080902

REACTIONS (3)
  - ATOPY [None]
  - MECHANICAL URTICARIA [None]
  - PRURITUS [None]
